FAERS Safety Report 5129570-5 (Version None)
Quarter: 2006Q4

REPORT INFORMATION
  Report Type: 
  Country: None (occurrence: None)
  Receive Date: 20061012
  Receipt Date: 20061003
  Transmission Date: 20070319
  Serious: Yes (Other)
  Sender: FDA-Public Use
  Company Number: 2006119493

PATIENT
  Sex: Female
  Weight: 58.9676 kg

DRUGS (7)
  1. ROGAINE [Suspect]
     Indication: ALOPECIA
     Dosage: 2ML TWICE A DAY, TOPICAL
     Route: 061
  2. ESOMEPRAZOLE (ESOMEPRAZOLE) [Concomitant]
  3. LEVOTHYROXINE SODIUM [Concomitant]
  4. DIGOXIN [Concomitant]
  5. WARFARIN SODIUM [Concomitant]
  6. METOPROLOL SUCCINATE [Concomitant]
  7. ROSUVASTATIN (ROSUVASTATIN) [Concomitant]

REACTIONS (3)
  - ALOPECIA [None]
  - ATRIAL FIBRILLATION [None]
  - CONDITION AGGRAVATED [None]
